FAERS Safety Report 4783764-7 (Version None)
Quarter: 2005Q3

REPORT INFORMATION
  Report Type: 
  Country: None (occurrence: None)
  Receive Date: 20050928
  Receipt Date: 20050915
  Transmission Date: 20060218
  Serious: Yes (Other)
  Sender: FDA-Public Use
  Company Number: 2005130448

PATIENT
  Sex: Female

DRUGS (1)
  1. DOXYCYCLINE [Suspect]
     Indication: GENITAL INFECTION FEMALE
     Dosage: 100 MG, ORAL
     Route: 048
     Dates: start: 20050914

REACTIONS (4)
  - CHEST DISCOMFORT [None]
  - INJURY ASPHYXIATION [None]
  - PALPITATIONS [None]
  - PARAESTHESIA [None]
